FAERS Safety Report 25546842 (Version 3)
Quarter: 2025Q3

REPORT INFORMATION
  Report Type: Report from Study
  Country: US (occurrence: None)
  Receive Date: 20250714
  Receipt Date: 20250813
  Transmission Date: 20251020
  Serious: Yes (Other)
  Sender: Alvotech
  Company Number: US-ALVOTECHPMS-2025-ALVOTECHPMS-004558

PATIENT
  Age: 20 Year
  Sex: Female

DRUGS (3)
  1. SIMLANDI [Suspect]
     Active Substance: ADALIMUMAB-RYVK
     Indication: Gastroenteritis
     Dosage: AUTOINJECTOR
     Route: 065
     Dates: start: 20250108
  2. MESALAMINE [Concomitant]
     Active Substance: MESALAMINE
  3. SIMLANDI [Suspect]
     Active Substance: ADALIMUMAB-RYVK
     Indication: Colitis
     Route: 065
     Dates: start: 20250701

REACTIONS (4)
  - Off label use [Unknown]
  - Device malfunction [Unknown]
  - Product dose omission issue [Unknown]
  - Colitis [Unknown]
